FAERS Safety Report 16679616 (Version 1)
Quarter: 2019Q3

REPORT INFORMATION
  Report Type: Spontaneous
  Country: GB (occurrence: GB)
  Receive Date: 20190807
  Receipt Date: 20190807
  Transmission Date: 20191004
  Serious: Yes (Other)
  Sender: FDA-Public Use
  Company Number: GB-TEVA-2019-GB-1089423

PATIENT
  Age: 94 Year
  Sex: Male
  Weight: 79.6 kg

DRUGS (14)
  1. MOVICOL [Concomitant]
     Active Substance: POLYETHYLENE GLYCOL 3350\POTASSIUM CHLORIDE\SODIUM BICARBONATE\SODIUM CHLORIDE
  2. ACETYLSALICYLIC ACID [Concomitant]
     Active Substance: ASPIRIN
  3. CALCIUM RESONIUM [Concomitant]
  4. TINZAPARIN [Concomitant]
     Active Substance: TINZAPARIN
  5. PREGABALIN. [Concomitant]
     Active Substance: PREGABALIN
  6. SIMVASTATIN. [Concomitant]
     Active Substance: SIMVASTATIN
  7. CIPROFLOXACIN. [Suspect]
     Active Substance: CIPROFLOXACIN
     Indication: PNEUMONIA
     Dosage: 800MG
     Route: 042
     Dates: start: 20190625, end: 20190625
  8. BUPRENORPHINE. [Concomitant]
     Active Substance: BUPRENORPHINE
  9. MORPHINE [Concomitant]
     Active Substance: MORPHINE
  10. CLOPIDOGREL [Concomitant]
     Active Substance: CLOPIDOGREL BISULFATE
  11. LANSOPRAZOLE. [Concomitant]
     Active Substance: LANSOPRAZOLE
  12. AMLODIPINE [Concomitant]
     Active Substance: AMLODIPINE BESYLATE
  13. PARACETAMOL [Concomitant]
     Active Substance: ACETAMINOPHEN
  14. BUMETANIDE. [Concomitant]
     Active Substance: BUMETANIDE

REACTIONS (1)
  - Rash erythematous [Recovered/Resolved]

NARRATIVE: CASE EVENT DATE: 20190625
